FAERS Safety Report 25524099 (Version 2)
Quarter: 2025Q4

REPORT INFORMATION
  Report Type: Report from Study
  Country: EU (occurrence: EU)
  Receive Date: 20250707
  Receipt Date: 20251031
  Transmission Date: 20260118
  Serious: Yes (Hospitalization)
  Sender: TAKEDA
  Company Number: EU-TAKEDA-2025TUS060716

PATIENT
  Age: 11 Year
  Sex: Female

DRUGS (17)
  1. TEDUGLUTIDE [Suspect]
     Active Substance: TEDUGLUTIDE
     Indication: Short-bowel syndrome
     Dosage: 0.45 MILLIGRAM, QD
     Dates: start: 20171020, end: 20180309
  2. TEDUGLUTIDE [Suspect]
     Active Substance: TEDUGLUTIDE
     Dosage: 0.55 MILLIGRAM, QD
     Dates: start: 20180310, end: 20190217
  3. TEDUGLUTIDE [Suspect]
     Active Substance: TEDUGLUTIDE
     Dosage: 0.6 MILLIGRAM, QD
     Dates: start: 20190218, end: 20190702
  4. TEDUGLUTIDE [Suspect]
     Active Substance: TEDUGLUTIDE
     Dosage: 0.65 MILLIGRAM, QD
     Dates: start: 20190703, end: 20200105
  5. TEDUGLUTIDE [Suspect]
     Active Substance: TEDUGLUTIDE
     Dosage: 0.62 MILLIGRAM, QD
     Dates: start: 20200106, end: 20200904
  6. TEDUGLUTIDE [Suspect]
     Active Substance: TEDUGLUTIDE
     Dosage: 0.75 MILLIGRAM, QD
     Dates: start: 20200905, end: 20210303
  7. TEDUGLUTIDE [Suspect]
     Active Substance: TEDUGLUTIDE
     Dosage: 0.75 MILLIGRAM, QD
     Dates: start: 20210304, end: 20220424
  8. TEDUGLUTIDE [Suspect]
     Active Substance: TEDUGLUTIDE
     Dosage: 0.85 MILLIGRAM, QD
     Dates: start: 20220425, end: 20221114
  9. TEDUGLUTIDE [Suspect]
     Active Substance: TEDUGLUTIDE
     Dosage: 0.85 MILLIGRAM, QD
     Dates: start: 20221115
  10. Sodium selenite pentahydrate [Concomitant]
     Indication: Prophylaxis
     Dosage: UNK UNK, QOD
     Dates: start: 20180705
  11. ZINC OROTATE [Concomitant]
     Active Substance: ZINC OROTATE
     Indication: Supplementation therapy
     Dosage: 12.5 MILLIGRAM, QOD
     Dates: start: 20180705
  12. ESOMEPRAZOLE [Concomitant]
     Active Substance: ESOMEPRAZOLE
     Indication: Prophylaxis
     Dosage: 10 MILLIGRAM, QD
     Dates: start: 20190703
  13. FERROUS GLUCONATE [Concomitant]
     Active Substance: FERROUS GLUCONATE
     Indication: Nutritional supplementation
     Dosage: 10 GTT DROPS, TID
     Dates: start: 20190702
  14. VITAMIN B12 [Concomitant]
     Active Substance: CYANOCOBALAMIN
     Indication: Vitamin B12 deficiency
     Dosage: 4 GTT DROPS, QD
     Dates: start: 20200904
  15. VITAMIN B12 [Concomitant]
     Active Substance: CYANOCOBALAMIN
     Dosage: 20 GTT DROPS, BID
     Dates: start: 20230713
  16. VITAMIN D3 [Concomitant]
     Active Substance: CHOLECALCIFEROL
     Indication: Vitamin D deficiency
     Dosage: 1000 INTERNATIONAL UNIT, QD
     Dates: start: 20221229
  17. CHOLECALCIFEROL [Concomitant]
     Active Substance: CHOLECALCIFEROL
     Indication: Vitamin D deficiency
     Dosage: 1000 INTERNATIONAL UNIT, QD
     Dates: start: 20230713

REACTIONS (2)
  - Medical device site inflammation [Not Recovered/Not Resolved]
  - Iron deficiency anaemia [Recovered/Resolved]

NARRATIVE: CASE EVENT DATE: 20250614
